FAERS Safety Report 9856636 (Version 2)
Quarter: 2014Q1

REPORT INFORMATION
  Report Type: Spontaneous
  Country: US (occurrence: US)
  Receive Date: 20140130
  Receipt Date: 20140130
  Transmission Date: 20141002
  Serious: Yes (Hospitalization)
  Sender: FDA-Public Use
  Company Number: US-GLAXOSMITHKLINE-A0789986A

PATIENT
  Age: 33 Year
  Sex: Female

DRUGS (7)
  1. AVANDIA [Suspect]
     Indication: DIABETES MELLITUS
     Dosage: 8MG PER DAY
     Route: 048
     Dates: start: 200005, end: 200810
  2. LISINOPRIL [Concomitant]
  3. METOCLOPRAMIDE [Concomitant]
  4. NOVOLOG [Concomitant]
  5. MEDROXYPROGESTERONE [Concomitant]
  6. LENTE INSULIN [Concomitant]
  7. PRILOSEC [Concomitant]

REACTIONS (2)
  - Myocardial infarction [Not Recovered/Not Resolved]
  - Cardiac failure congestive [Unknown]
